FAERS Safety Report 5371728-4 (Version None)
Quarter: 2007Q2

REPORT INFORMATION
  Report Type: 
  Country: None (occurrence: None)
  Receive Date: 20070625
  Receipt Date: 20070613
  Transmission Date: 20071010
  Serious: Yes (Other)
  Sender: FDA-Public Use
  Company Number: B0474627A

PATIENT
  Age: 50 Year
  Sex: Male

DRUGS (3)
  1. SALBUTAMOL SULPHATE (FORMULATION UNKNOWN) (GENERIC) (ALBUTEROL SULFATE [Suspect]
  2. VENTOLIN [Suspect]
     Indication: ASTHMA
     Dosage: .8 MG/HR INTRAVENOUS INFUS
  3. TERBUTALINE SULFATE [Suspect]
     Dosage: 5 MG

REACTIONS (2)
  - LACTIC ACIDOSIS [None]
  - METABOLIC ACIDOSIS [None]
